FAERS Safety Report 13981778 (Version 1)
Quarter: 2017Q3

REPORT INFORMATION
  Report Type: Spontaneous
  Country: IT (occurrence: IT)
  Receive Date: 20170918
  Receipt Date: 20170918
  Transmission Date: 20171128
  Serious: Yes (Other)
  Sender: FDA-Public Use
  Company Number: IT-SUN PHARMACEUTICAL INDUSTRIES LTD-2017RR-149774

PATIENT
  Age: 66 Year
  Sex: Female

DRUGS (3)
  1. IBUPROFEN. [Suspect]
     Active Substance: IBUPROFEN
     Indication: OSTEOARTHRITIS
     Dosage: 1 DF DAILY
     Route: 048
     Dates: start: 20170720, end: 20170725
  2. NIMESULIDE [Suspect]
     Active Substance: NIMESULIDE
     Indication: ARTHRITIS
     Dosage: 1 DF DAILY
     Route: 048
     Dates: start: 20170720, end: 20170725
  3. PARACETAMOL [Concomitant]
     Active Substance: ACETAMINOPHEN
     Indication: PRODUCT USED FOR UNKNOWN INDICATION
     Route: 048

REACTIONS (2)
  - Abdominal tenderness [Recovering/Resolving]
  - Erosive duodenitis [Recovering/Resolving]

NARRATIVE: CASE EVENT DATE: 20170725
